FAERS Safety Report 13835511 (Version 4)
Quarter: 2018Q4

REPORT INFORMATION
  Report Type: Report from Study
  Country: None (occurrence: US)
  Receive Date: 20170804
  Receipt Date: 20181119
  Transmission Date: 20190204
  Serious: Yes (Hospitalization)
  Sender: FDA-Public Use
  Company Number: US-ABBVIE-17K-163-2060322-00

PATIENT
  Age: 61 Year
  Sex: Female

DRUGS (13)
  1. IBUPROFEN. [Concomitant]
     Active Substance: IBUPROFEN
     Indication: PAIN
  2. OMEPRAZOLE. [Concomitant]
     Active Substance: OMEPRAZOLE
     Indication: GASTROOESOPHAGEAL REFLUX DISEASE
  3. HUMIRA [Suspect]
     Active Substance: ADALIMUMAB
     Route: 058
     Dates: start: 20170705, end: 201708
  4. VITAMIN E [Concomitant]
     Active Substance: .ALPHA.-TOCOPHEROL
     Indication: VITAMIN SUPPLEMENTATION
  5. LORTAB [Concomitant]
     Active Substance: ACETAMINOPHEN\HYDROCODONE BITARTRATE
     Indication: BACK PAIN
  6. CLINDAMYCIN. [Concomitant]
     Active Substance: CLINDAMYCIN
     Indication: PROPHYLAXIS
     Route: 048
  7. VOLTAREN [Concomitant]
     Active Substance: DICLOFENAC SODIUM
     Indication: PAIN
  8. HUMIRA [Suspect]
     Active Substance: ADALIMUMAB
     Indication: RHEUMATOID ARTHRITIS
     Route: 058
     Dates: start: 20160810, end: 20170628
  9. CLINDAMYCIN. [Concomitant]
     Active Substance: CLINDAMYCIN
     Indication: ANTIBIOTIC PROPHYLAXIS
  10. MIRAPEX [Concomitant]
     Active Substance: PRAMIPEXOLE DIHYDROCHLORIDE
     Indication: RESTLESS LEGS SYNDROME
  11. ZYRTEC [Concomitant]
     Active Substance: CETIRIZINE HYDROCHLORIDE
     Indication: HYPERSENSITIVITY
  12. DULOXETINE. [Concomitant]
     Active Substance: DULOXETINE
     Indication: FIBROMYALGIA
  13. VITAMIN D [Concomitant]
     Active Substance: CHOLECALCIFEROL
     Indication: VITAMIN SUPPLEMENTATION

REACTIONS (6)
  - Osteoarthritis [Not Recovered/Not Resolved]
  - Cerebrospinal fluid leakage [Recovered/Resolved]
  - Sciatica [Recovering/Resolving]
  - Back pain [Recovering/Resolving]
  - Procedural pain [Not Recovered/Not Resolved]
  - Osteoarthritis [Recovering/Resolving]

NARRATIVE: CASE EVENT DATE: 201609
